FAERS Safety Report 14875244 (Version 1)
Quarter: 2018Q2

REPORT INFORMATION
  Report Type: Spontaneous
  Country: ZA (occurrence: ZA)
  Receive Date: 20180510
  Receipt Date: 20180510
  Transmission Date: 20180711
  Serious: Yes (Hospitalization)
  Sender: FDA-Public Use
  Company Number: ZA-PFIZER INC-2018186438

PATIENT
  Age: 65 Year
  Sex: Male

DRUGS (8)
  1. ADCO-SIMVASTATIN [Suspect]
     Active Substance: SIMVASTATIN
     Dosage: 40 MG, UNK
  2. DISPRIN CARDIOCARE [Suspect]
     Active Substance: ASPIRIN
     Dosage: 100 MG, UNK
  3. ALDACTONE [Suspect]
     Active Substance: SPIRONOLACTONE
     Dosage: 25 MG, UNK
  4. TAREG [Suspect]
     Active Substance: VALSARTAN
     Dosage: 80 MG, UNK
  5. CARLOC [Suspect]
     Active Substance: CARVEDILOL
     Dosage: 25 MG, UNK
  6. LOKIT /00661201/ [Suspect]
     Active Substance: OMEPRAZOLE
     Dosage: 20 MG, UNK
  7. ARCOXIA [Suspect]
     Active Substance: ETORICOXIB
     Dosage: 90 MG, UNK
  8. PURICOS [Suspect]
     Active Substance: ALLOPURINOL
     Dosage: 300 MG, UNK

REACTIONS (2)
  - Pneumonia [Unknown]
  - Cardiac failure [Unknown]
